FAERS Safety Report 4677823-7 (Version None)
Quarter: 2005Q2

REPORT INFORMATION
  Report Type: 
  Country: None (occurrence: None)
  Receive Date: 20050531
  Receipt Date: 20050524
  Transmission Date: 20051028
  Serious: Yes (Other)
  Sender: FDA-Public Use
  Company Number: US-BRISTOL-MYERS SQUIBB COMPANY-12981072

PATIENT
  Age: 58 Year
  Sex: Male
  Weight: 90 kg

DRUGS (5)
  1. ERBITUX [Suspect]
     Indication: COLON CANCER METASTATIC
     Dosage: THERAPY START DATE 21-FEB-2005, REC'D 14 DOSES.
     Route: 042
     Dates: start: 20050101, end: 20050101
  2. BENADRYL [Concomitant]
     Indication: PREMEDICATION
     Route: 042
     Dates: start: 20050101
  3. XELODA [Concomitant]
     Dates: end: 20050404
  4. NEURONTIN [Concomitant]
  5. METFORMIN HCL [Concomitant]

REACTIONS (5)
  - NEUROPATHY [None]
  - PAIN OF SKIN [None]
  - RASH [None]
  - SKIN CHAPPED [None]
  - SKIN EXFOLIATION [None]
